FAERS Safety Report 22274540 (Version 3)
Quarter: 2023Q2

REPORT INFORMATION
  Report Type: Report from Study
  Country: CA (occurrence: CA)
  Receive Date: 20230502
  Receipt Date: 20230522
  Transmission Date: 20230722
  Serious: Yes (Hospitalization)
  Sender: FDA-Public Use
  Company Number: CA-002147023-NVSC2022CA065857

PATIENT
  Age: 40 Year
  Sex: Female

DRUGS (1)
  1. KESIMPTA [Suspect]
     Active Substance: OFATUMUMAB
     Indication: Relapsing-remitting multiple sclerosis
     Dosage: UNK UNK, QMO (TAKING MONTHLY INJECTIONS EVERY 4TH FRIDAY)
     Route: 058
     Dates: start: 20220311

REACTIONS (8)
  - Tachycardia [Not Recovered/Not Resolved]
  - Influenza like illness [Recovered/Resolved]
  - Pyrexia [Recovered/Resolved]
  - Chills [Recovered/Resolved]
  - Pain [Recovered/Resolved]
  - Hypoaesthesia [Unknown]
  - Tooth abscess [Unknown]
  - Fatigue [Unknown]

NARRATIVE: CASE EVENT DATE: 20220311
